FAERS Safety Report 20326307 (Version 7)
Quarter: 2022Q3

REPORT INFORMATION
  Report Type: Spontaneous
  Country: JP (occurrence: JP)
  Receive Date: 20220112
  Receipt Date: 20220916
  Transmission Date: 20221027
  Serious: Yes (Other)
  Sender: FDA-Public Use
  Company Number: JP-GLAXOSMITHKLINE-JP2022JPN002918

PATIENT

DRUGS (31)
  1. NUCALA [Suspect]
     Active Substance: MEPOLIZUMAB
     Indication: Asthma
     Dosage: 100 MG
     Dates: start: 20211112, end: 20211112
  2. NUCALA [Suspect]
     Active Substance: MEPOLIZUMAB
     Dosage: 100 MG
     Dates: start: 20211210, end: 20211210
  3. NUCALA [Suspect]
     Active Substance: MEPOLIZUMAB
     Dosage: 100 MG
     Dates: start: 20220107, end: 20220107
  4. NUCALA [Suspect]
     Active Substance: MEPOLIZUMAB
     Dosage: 100 MG
     Dates: start: 20220204, end: 20220204
  5. NUCALA [Suspect]
     Active Substance: MEPOLIZUMAB
     Dosage: 100 MG
     Dates: start: 20220625, end: 20220625
  6. NUCALA [Suspect]
     Active Substance: MEPOLIZUMAB
     Dosage: 100 MG
     Dates: start: 20220723, end: 20220723
  7. NUCALA [Suspect]
     Active Substance: MEPOLIZUMAB
     Dosage: 100 MG
     Dates: start: 20220820, end: 20220820
  8. TRELEGY ELLIPTA [Suspect]
     Active Substance: FLUTICASONE FUROATE\UMECLIDINIUM BROMIDE\VILANTEROL TRIFENATATE
     Indication: Asthma
     Dosage: 100 ?G, QD
     Route: 055
     Dates: start: 20210804
  9. TRELEGY ELLIPTA [Suspect]
     Active Substance: FLUTICASONE FUROATE\UMECLIDINIUM BROMIDE\VILANTEROL TRIFENATATE
     Dosage: 200 ?G, QD
     Route: 055
     Dates: start: 20211104
  10. FLUTICASONE FUROATE\VILANTEROL TRIFENATATE [Suspect]
     Active Substance: FLUTICASONE FUROATE\VILANTEROL TRIFENATATE
     Dosage: 100 ?G, QD
     Route: 055
     Dates: start: 20210804, end: 20211103
  11. FLUTICASONE FUROATE\VILANTEROL TRIFENATATE [Suspect]
     Active Substance: FLUTICASONE FUROATE\VILANTEROL TRIFENATATE
     Dosage: 200 ?G, QD
     Route: 055
     Dates: start: 20211104
  12. AUGMENTIN [Suspect]
     Active Substance: AMOXICILLIN\CLAVULANATE POTASSIUM
     Indication: Nasopharyngitis
     Dosage: UNK
  13. AUGMENTIN [Suspect]
     Active Substance: AMOXICILLIN\CLAVULANATE POTASSIUM
     Dosage: UNK
     Dates: start: 202111
  14. AUGMENTIN [Suspect]
     Active Substance: AMOXICILLIN\CLAVULANATE POTASSIUM
     Dosage: 250 MG, TID
     Dates: start: 20211210
  15. AUGMENTIN [Suspect]
     Active Substance: AMOXICILLIN\CLAVULANATE POTASSIUM
     Dosage: UNK
     Dates: start: 202201
  16. AUGMENTIN [Suspect]
     Active Substance: AMOXICILLIN\CLAVULANATE POTASSIUM
     Dosage: 250 MG, TID
     Dates: start: 20220204
  17. DECADRON [Suspect]
     Active Substance: DEXAMETHASONE
  18. FLUTICASONE FUROATE [Concomitant]
     Active Substance: FLUTICASONE FUROATE
     Dosage: UNK
     Dates: start: 20220204
  19. YODEL-S SUGAR COATED TABLET [Concomitant]
     Dosage: 160 MG, QD, AT BEDTIME
     Dates: start: 20211104
  20. MONTELUKAST KM TABLETS [Concomitant]
     Dosage: 10 MG, QD, AT BEDTIME
     Dates: start: 20211104
  21. TRAMCET COMBINATION TABLETS [Concomitant]
     Dosage: 1 DF, TID, AFTER EACH MEAL
     Dates: start: 20211104
  22. REBAMIPIDE [Concomitant]
     Active Substance: REBAMIPIDE
     Dosage: 100 MG, TID, AFTER EACH MEAL
     Dates: start: 20211104
  23. NEXIUM [Concomitant]
     Active Substance: ESOMEPRAZOLE MAGNESIUM
     Dosage: 20 MG, QD, AFTER DINNER
     Dates: start: 20211104
  24. CARVEDILOL [Concomitant]
     Active Substance: CARVEDILOL
     Dosage: 1.25 MG, BID, AFTER BREAKFAST AND AFTER DINNER
     Dates: start: 20211104
  25. LUPRAC TABLETS [Concomitant]
     Dosage: 4 MG, QD, AFTER BREAKFAST
     Dates: start: 20211104
  26. THEOPHYLLINE SUSTAINED-RELEASE TABLETS [Concomitant]
     Dosage: 200 MG, BID, AFTER BREAKFAST AND AFTER DINNER
     Dates: start: 20211104
  27. SILECE TABLET [Concomitant]
     Dosage: 1 MG, QD, AT BEDTIME
     Dates: start: 20211104
  28. MYSLEE TABLETS [Concomitant]
     Dosage: 10 MG, QD, AT BEDTIME
     Dates: start: 20211104
  29. TULOBUTEROL TAPE [Concomitant]
     Dosage: 2 MG, QD
     Dates: start: 20211104
  30. KETOPROFEN [Concomitant]
     Active Substance: KETOPROFEN
     Dosage: UNK, QD
     Dates: start: 20211104
  31. LOXOPROFEN SODIUM [Concomitant]
     Active Substance: LOXOPROFEN SODIUM
     Dosage: UNK, PRN
     Dates: start: 20211210

REACTIONS (14)
  - Hepatitis [Recovered/Resolved]
  - Nasopharyngitis [Recovered/Resolved]
  - Oral candidiasis [Recovering/Resolving]
  - Swelling face [Recovered/Resolved]
  - Swelling of eyelid [Recovered/Resolved]
  - Cough [Recovering/Resolving]
  - Initial insomnia [Recovering/Resolving]
  - Asthma [Recovered/Resolved]
  - Productive cough [Recovered/Resolved]
  - Physical deconditioning [Recovered/Resolved]
  - Lymphadenopathy [Unknown]
  - Therapeutic product effect incomplete [Unknown]
  - Nasopharyngitis [Recovered/Resolved]
  - Wheezing [Recovered/Resolved]

NARRATIVE: CASE EVENT DATE: 20211001
